FAERS Safety Report 15842951 (Version 1)
Quarter: 2019Q1

REPORT INFORMATION
  Report Type: Spontaneous
  Country: US (occurrence: US)
  Receive Date: 20190118
  Receipt Date: 20190118
  Transmission Date: 20190417
  Serious: Yes (Hospitalization)
  Sender: FDA-Public Use
  Company Number: None

PATIENT
  Age: 71 Year
  Sex: Male
  Weight: 92.1 kg

DRUGS (4)
  1. ZYDELIG [Suspect]
     Active Substance: IDELALISIB
     Indication: CHRONIC LYMPHOCYTIC LEUKAEMIA
     Route: 048
     Dates: start: 20170830, end: 20190101
  2. LANOXIN 125MCG [Concomitant]
     Dates: start: 20171003
  3. BACTRIM [Concomitant]
     Active Substance: SULFAMETHOXAZOLE\TRIMETHOPRIM
     Dates: start: 20180709
  4. ZOVIRAX 400MG TAB [Concomitant]
     Dates: start: 20181221

REACTIONS (4)
  - Dizziness [None]
  - Vomiting [None]
  - Asthenia [None]
  - Colitis [None]

NARRATIVE: CASE EVENT DATE: 20190101
